FAERS Safety Report 23816833 (Version 7)
Quarter: 2025Q1

REPORT INFORMATION
  Report Type: Report from Study
  Country: US (occurrence: US)
  Receive Date: 20240504
  Receipt Date: 20250211
  Transmission Date: 20250409
  Serious: Yes (Hospitalization, Other)
  Sender: NOVARTIS
  Company Number: US-002147023-NVSC2024US064923

PATIENT
  Age: 37 Year
  Sex: Female

DRUGS (1)
  1. KESIMPTA [Suspect]
     Active Substance: OFATUMUMAB
     Indication: Multiple sclerosis
     Dosage: 20 MG, QMO
     Route: 058
     Dates: start: 20240313

REACTIONS (16)
  - Seizure [Not Recovered/Not Resolved]
  - Multiple sclerosis relapse [Unknown]
  - Pulmonary mass [Unknown]
  - Fall [Unknown]
  - Choking [Unknown]
  - Dysphagia [Unknown]
  - Blindness unilateral [Unknown]
  - Multiple sclerosis [Unknown]
  - Visual impairment [Not Recovered/Not Resolved]
  - Loss of consciousness [Unknown]
  - Gait inability [Not Recovered/Not Resolved]
  - Feeling abnormal [Unknown]
  - Cerebral disorder [Unknown]
  - Memory impairment [Unknown]
  - Nasopharyngitis [Unknown]
  - Cough [Unknown]

NARRATIVE: CASE EVENT DATE: 20240325
